FAERS Safety Report 4650742-8 (Version None)
Quarter: 2005Q2

REPORT INFORMATION
  Report Type: 
  Country: None (occurrence: None)
  Receive Date: 20050503
  Receipt Date: 20040922
  Transmission Date: 20051028
  Serious: Yes (Hospitalization)
  Sender: FDA-Public Use
  Company Number: US-2004-BP-08494BP

PATIENT
  Age: 76 Year
  Sex: Female

DRUGS (14)
  1. SPIRIVA [Suspect]
     Indication: CHRONIC OBSTRUCTIVE PULMONARY DISEASE
     Route: 055
     Dates: start: 20040708, end: 20040711
  2. CELEXA [Concomitant]
     Route: 048
  3. SYNTHROID [Concomitant]
     Route: 048
  4. BUSPIRONE HCL [Concomitant]
     Route: 048
  5. AVAPRO [Concomitant]
     Route: 048
  6. CARDIZEM LA [Concomitant]
     Route: 048
  7. ASPIRIN [Concomitant]
     Route: 048
  8. SINGULAIR [Concomitant]
     Route: 048
  9. MOBIC [Concomitant]
     Route: 048
  10. GUAIFENESIN [Concomitant]
     Route: 048
  11. ULTRACET [Concomitant]
     Dosage: 37.5/325 MG PRN
     Route: 048
  12. NEXIUM [Concomitant]
     Route: 048
  13. LIPITOR [Concomitant]
     Route: 048
  14. ACTONEL [Concomitant]
     Route: 048

REACTIONS (3)
  - APHASIA [None]
  - FEELING ABNORMAL [None]
  - SYNCOPE [None]
